FAERS Safety Report 20839969 (Version 1)
Quarter: 2022Q2

REPORT INFORMATION
  Report Type: Spontaneous
  Country: US (occurrence: None)
  Receive Date: 20220516
  Receipt Date: 20220516
  Transmission Date: 20220720
  Serious: No
  Sender: FDA-Public Use
  Company Number: None

PATIENT
  Sex: Female

DRUGS (1)
  1. ICATIBANT ACETATE [Suspect]
     Active Substance: ICATIBANT ACETATE
     Indication: Complement deficiency disease
     Dosage: FREQUENCY : AS NEEDED;?
     Route: 058
     Dates: start: 202105

REACTIONS (8)
  - Injection site erythema [None]
  - Injection site swelling [None]
  - Injection site pain [None]
  - Swelling face [None]
  - Lip swelling [None]
  - Swollen tongue [None]
  - Swelling [None]
  - Product quality issue [None]
